FAERS Safety Report 5379335-4 (Version None)
Quarter: 2007Q3

REPORT INFORMATION
  Report Type: 
  Country: None (occurrence: None)
  Receive Date: 20070702
  Receipt Date: 20070626
  Transmission Date: 20080115
  Serious: Yes (Other)
  Sender: FDA-Public Use
  Company Number: 2007SP012863

PATIENT
  Sex: Female

DRUGS (1)
  1. INTRON A [Suspect]
     Indication: POLYCYTHAEMIA VERA
     Dosage: SEE IMAGE
     Route: 058

REACTIONS (2)
  - ANAEMIA [None]
  - MYELOFIBROSIS [None]
